FAERS Safety Report 13733846 (Version 3)
Quarter: 2020Q1

REPORT INFORMATION
  Report Type: Spontaneous
  Country: FR (occurrence: FR)
  Receive Date: 20170707
  Receipt Date: 20200320
  Transmission Date: 20200409
  Serious: Yes (Hospitalization)
  Sender: FDA-Public Use
  Company Number: FR-VIFOR (INTERNATIONAL) INC.-VIT-2017-07302

PATIENT
  Age: 67 Year
  Sex: Male

DRUGS (15)
  1. VELPHORO [Suspect]
     Active Substance: FERRIC OXYHYDROXIDE
     Indication: CHRONIC KIDNEY DISEASE
     Route: 048
     Dates: start: 201703, end: 20170603
  2. KARDEGIC [Concomitant]
     Active Substance: ASPIRIN DL-LYSINE
     Dosage: 1 SACHET AT LUNCH
  3. XATRAL LP [Concomitant]
     Active Substance: ALFUZOSIN
  4. BRICANYL [Concomitant]
     Active Substance: TERBUTALINE SULFATE
     Dosage: 1 IN THE MORNING, 1 IN THE EVENING
  5. CREON [Concomitant]
     Active Substance: PANCRELIPASE AMYLASE\PANCRELIPASE LIPASE\PANCRELIPASE PROTEASE
  6. VELPHORO [Suspect]
     Active Substance: FERRIC OXYHYDROXIDE
     Route: 048
  7. SODIUM BICARBONATE. [Concomitant]
     Active Substance: SODIUM BICARBONATE
     Dosage: IN THE MORNING, AT LUNCH AND IN THE EVENING
  8. INEXIUM [Concomitant]
     Active Substance: ESOMEPRAZOLE
     Dosage: IN THE MORNING AND IN THE EVENING
  9. DOLIPRANE [Concomitant]
     Active Substance: ACETAMINOPHEN
  10. BISOPROLOL [Concomitant]
     Active Substance: BISOPROLOL
  11. KAYEXALATE [Concomitant]
     Active Substance: SODIUM POLYSTYRENE SULFONATE
     Dosage: ONE MEASURING SPOON IN DAYS WITHOUT DIALYSIS
  12. PRIMPERAN [Concomitant]
     Active Substance: METOCLOPRAMIDE HYDROCHLORIDE
  13. LASILIX [Concomitant]
     Active Substance: FUROSEMIDE
  14. ATARAX [Concomitant]
     Active Substance: HYDROXYZINE HYDROCHLORIDE
  15. OROCAL [Concomitant]
     Dosage: ONE AT LUNCH AND ONE IN THE EVENING IN THE MIDDLE OF MEALS

REACTIONS (12)
  - Nausea [Recovered/Resolved]
  - Gastrointestinal motility disorder [Unknown]
  - Wheezing [Unknown]
  - Abdominal pain [Recovered/Resolved]
  - Faecal vomiting [Recovered/Resolved]
  - Pyrexia [Unknown]
  - Constipation [Unknown]
  - Faeces discoloured [Recovering/Resolving]
  - Areflexia [Unknown]
  - Abdominal pain upper [Unknown]
  - Faeces hard [Unknown]
  - Hiatus hernia [Unknown]

NARRATIVE: CASE EVENT DATE: 201706
